FAERS Safety Report 8299931-4 (Version None)
Quarter: 2012Q2

REPORT INFORMATION
  Report Type: 
  Country: None (occurrence: None)
  Receive Date: 20120420
  Receipt Date: 20120411
  Transmission Date: 20120825
  Serious: No
  Sender: FDA-Public Use
  Company Number: US-BIOGENIDEC-2012BI005616

PATIENT
  Age: 63 Year
  Sex: Female

DRUGS (1)
  1. TYSABRI [Suspect]
     Indication: MULTIPLE SCLEROSIS
     Route: 042
     Dates: start: 20081110

REACTIONS (9)
  - SYNOVIAL CYST [None]
  - GENERAL PHYSICAL HEALTH DETERIORATION [None]
  - ROTATOR CUFF SYNDROME [None]
  - ANXIETY [None]
  - EMOTIONAL DISTRESS [None]
  - PAIN [None]
  - MALAISE [None]
  - FATIGUE [None]
  - GAIT DISTURBANCE [None]
